FAERS Safety Report 12936598 (Version 2)
Quarter: 2017Q1

REPORT INFORMATION
  Report Type: Report from Study
  Country: KR (occurrence: KR)
  Receive Date: 20161114
  Receipt Date: 20170320
  Transmission Date: 20170428
  Serious: Yes (Death)
  Sender: FDA-Public Use
  Company Number: KR-PFIZER INC-2016523400

PATIENT
  Age: 82 Year

DRUGS (2)
  1. OXALIPLATIN. [Suspect]
     Active Substance: OXALIPLATIN
     Indication: ADENOCARCINOMA PANCREAS
     Dosage: 130 MG/M2, CYCLIC (120-MINUTE INFUSION ON DAY 1, 3-WEEK CYCLE)
     Route: 042
  2. CAPECITABINE. [Suspect]
     Active Substance: CAPECITABINE
     Indication: ADENOCARCINOMA PANCREAS
     Dosage: 1000 MG/M2, CYCLIC (TWICE DAILY FOR 14 DAYS)
     Route: 048

REACTIONS (2)
  - Colitis [Fatal]
  - Neutropenia [Fatal]
